FAERS Safety Report 7637816-4 (Version None)
Quarter: 2011Q3

REPORT INFORMATION
  Report Type: 
  Country: None (occurrence: None)
  Receive Date: 20110720
  Receipt Date: 20110708
  Transmission Date: 20111222
  Serious: Yes (Hospitalization, Other)
  Sender: FDA-Public Use
  Company Number: 2010AC000340

PATIENT
  Age: 59 Year
  Sex: Female

DRUGS (16)
  1. NITROGLYCERIN [Concomitant]
  2. LIPITOR [Concomitant]
  3. NIACIN [Concomitant]
  4. ASPIRIN [Concomitant]
  5. PLAVIX [Concomitant]
  6. ACTONEL [Concomitant]
  7. HYDROCODONE BITARTRATE [Concomitant]
  8. IMDUR [Concomitant]
  9. POTASSIUM CHLORIDE [Concomitant]
  10. LASIX [Concomitant]
  11. TOPROL-XL [Concomitant]
  12. VERAPAMIL [Concomitant]
  13. DIGOXIN [Suspect]
     Indication: CARDIAC FAILURE CONGESTIVE
     Dosage: 0.250 MG; QD ; PO
     Route: 048
     Dates: start: 20060301, end: 20080601
  14. KLONOPIN [Concomitant]
  15. CLONIDINE [Concomitant]
  16. COMBO V/D [Concomitant]

REACTIONS (31)
  - ANXIETY [None]
  - NAUSEA [None]
  - ELECTROCARDIOGRAM QT PROLONGED [None]
  - BLOOD CHLORIDE DECREASED [None]
  - BLOOD GLUCOSE INCREASED [None]
  - INCREASED VISCOSITY OF BRONCHIAL SECRETION [None]
  - BRAIN NATRIURETIC PEPTIDE INCREASED [None]
  - CARDIAC FAILURE CONGESTIVE [None]
  - PAIN [None]
  - COUGH [None]
  - RESPIRATORY DISTRESS [None]
  - ELECTROCARDIOGRAM REPOLARISATION ABNORMALITY [None]
  - ECONOMIC PROBLEM [None]
  - SINUS BRADYCARDIA [None]
  - VENTRICULAR EXTRASYSTOLES [None]
  - LEFT VENTRICULAR HYPERTROPHY [None]
  - PAIN IN EXTREMITY [None]
  - EXTRASYSTOLES [None]
  - ENDOCARDIAL DISEASE [None]
  - BLOOD CREATININE INCREASED [None]
  - CARDIAC DISORDER [None]
  - ELECTROCARDIOGRAM ST SEGMENT ABNORMAL [None]
  - BLOOD SODIUM DECREASED [None]
  - PROTEIN TOTAL INCREASED [None]
  - TOXICITY TO VARIOUS AGENTS [None]
  - MULTIPLE INJURIES [None]
  - DYSPNOEA [None]
  - ASPARTATE AMINOTRANSFERASE INCREASED [None]
  - VOMITING [None]
  - WHEEZING [None]
  - ATRIAL FIBRILLATION [None]
